FAERS Safety Report 20003218 (Version 6)
Quarter: 2022Q2

REPORT INFORMATION
  Report Type: Spontaneous
  Country: IN (occurrence: IN)
  Receive Date: 20211027
  Receipt Date: 20220422
  Transmission Date: 20220721
  Serious: No
  Sender: FDA-Public Use
  Company Number: IN-LUPIN LIMITED-2021-20491

PATIENT
  Age: 22 Year
  Sex: Female
  Weight: 40 kg

DRUGS (9)
  1. BUDESONIDE\FORMOTEROL FUMARATE [Suspect]
     Active Substance: BUDESONIDE\FORMOTEROL FUMARATE
     Indication: Cough
     Dosage: 6 DOSAGE FORM, QD (6 PUFFS A DAY)
     Route: 048
     Dates: start: 20210811, end: 202110
  2. BUDESONIDE\FORMOTEROL FUMARATE [Suspect]
     Active Substance: BUDESONIDE\FORMOTEROL FUMARATE
     Dosage: DOSE INCREASED
     Route: 048
     Dates: start: 2021, end: 202110
  3. CEFIXIME [Suspect]
     Active Substance: CEFIXIME
     Indication: Product used for unknown indication
     Dosage: 5 MILLIGRAM, TABLET
     Route: 065
     Dates: start: 202110
  4. DOMPERIDONE\PANTOPRAZOLE SODIUM [Suspect]
     Active Substance: DOMPERIDONE\PANTOPRAZOLE SODIUM
     Indication: Dyspepsia
     Dosage: UNK UNK, QD (ONE TIME)
     Route: 065
     Dates: start: 202108, end: 2021
  5. FOLIC ACID [Suspect]
     Active Substance: FOLIC ACID
     Indication: Product used for unknown indication
     Dosage: UNK, SINGLE
     Route: 065
     Dates: start: 202110
  6. AMOXICILLIN\CLAVULANIC ACID [Suspect]
     Active Substance: AMOXICILLIN\CLAVULANIC ACID
     Indication: Product used for unknown indication
     Dosage: UNK
     Route: 065
     Dates: start: 202110
  7. LYCOPENE [Suspect]
     Active Substance: LYCOPENE
     Indication: Product used for unknown indication
     Dosage: UNK, SINGLE
     Route: 065
     Dates: start: 202110
  8. AMMONIUM CHLORIDE\CHLORPHENIRAMINE\DEXTROMETHORPHAN\GUAIFENESIN [Suspect]
     Active Substance: AMMONIUM CHLORIDE\CHLORPHENIRAMINE\DEXTROMETHORPHAN\GUAIFENESIN
     Indication: Cough
     Dosage: UNK, SINGLE
     Route: 065
     Dates: start: 202110
  9. CETIRIZINE HYDROCHLORIDE [Suspect]
     Active Substance: CETIRIZINE HYDROCHLORIDE
     Indication: Product used for unknown indication
     Dosage: UNK
     Route: 065
     Dates: start: 202110, end: 202110

REACTIONS (1)
  - Exposure during pregnancy [Unknown]

NARRATIVE: CASE EVENT DATE: 20211001
